FAERS Safety Report 18614078 (Version 2)
Quarter: 2021Q1

REPORT INFORMATION
  Report Type: Spontaneous
  Country: PL (occurrence: PL)
  Receive Date: 20201214
  Receipt Date: 20210226
  Transmission Date: 20210419
  Serious: Yes (Hospitalization)
  Sender: FDA-Public Use
  Company Number: PL-BAUSCH-BL-2020-035388

PATIENT
  Age: 59 Year
  Sex: Male

DRUGS (11)
  1. ANESTHESIN [Suspect]
     Active Substance: BENZOCAINE
     Indication: PRODUCT USED FOR UNKNOWN INDICATION
     Route: 065
  2. DEXAMETHASONE. [Suspect]
     Active Substance: DEXAMETHASONE
     Indication: PRODUCT USED FOR UNKNOWN INDICATION
     Route: 065
  3. ICHTHYOL [Suspect]
     Active Substance: ICHTHAMMOL
     Indication: PRODUCT USED FOR UNKNOWN INDICATION
     Route: 065
  4. MEROPENEM. [Suspect]
     Active Substance: MEROPENEM
     Indication: PRODUCT USED FOR UNKNOWN INDICATION
     Route: 065
  5. METHYLPREDNISOLONE. [Suspect]
     Active Substance: METHYLPREDNISOLONE
     Indication: PRODUCT USED FOR UNKNOWN INDICATION
     Route: 048
  6. SOMATOSTATIN [Suspect]
     Active Substance: SOMATOSTATIN
     Indication: PRODUCT USED FOR UNKNOWN INDICATION
     Route: 065
  7. SOMATOSTATIN [Suspect]
     Active Substance: SOMATOSTATIN
     Route: 065
  8. METRONIDAZOLE. [Suspect]
     Active Substance: METRONIDAZOLE
     Indication: PRODUCT USED FOR UNKNOWN INDICATION
     Route: 042
  9. SOMATOSTATIN [Suspect]
     Active Substance: SOMATOSTATIN
     Route: 065
  10. HEPARIN [Suspect]
     Active Substance: HEPARIN SODIUM
     Indication: PRODUCT USED FOR UNKNOWN INDICATION
     Route: 065
  11. CEFTRIAXONE. [Suspect]
     Active Substance: CEFTRIAXONE
     Indication: PRODUCT USED FOR UNKNOWN INDICATION
     Route: 065

REACTIONS (11)
  - Pancreatitis [Unknown]
  - Peripheral swelling [Unknown]
  - Panniculitis [Unknown]
  - Drug ineffective [Unknown]
  - Pyrexia [Unknown]
  - Mouth ulceration [Unknown]
  - Polyarthritis [Unknown]
  - Normocytic anaemia [Unknown]
  - Necrosis [Unknown]
  - Decubitus ulcer [Not Recovered/Not Resolved]
  - Pancreatic neoplasm [Unknown]
